FAERS Safety Report 10231647 (Version 2)
Quarter: 2014Q2

REPORT INFORMATION
  Report Type: Spontaneous
  Country: US (occurrence: US)
  Receive Date: 20140611
  Receipt Date: 20140611
  Transmission Date: 20141212
  Serious: Yes (Death, Hospitalization)
  Sender: FDA-Public Use
  Company Number: US-US-EMD SERONO, INC.-230627K09USA

PATIENT
  Age: 48 Year
  Sex: Female
  Weight: 91 kg

DRUGS (8)
  1. REBIF [Suspect]
     Indication: MULTIPLE SCLEROSIS
     Route: 058
     Dates: start: 20061103, end: 200901
  2. CELEBREX [Concomitant]
     Indication: ARTHRITIS
     Route: 048
  3. SOMA [Concomitant]
     Indication: PRODUCT USED FOR UNKNOWN INDICATION
     Route: 065
  4. SIMVASTATIN [Concomitant]
     Indication: BLOOD CHOLESTEROL
     Route: 048
  5. OXYBUTYNIN [Concomitant]
     Indication: BLADDER DISORDER
     Route: 048
  6. WARFARIN [Concomitant]
     Indication: BLOOD DISORDER
     Route: 048
  7. PREDNISONE [Concomitant]
     Indication: INFLAMMATION
     Route: 048
  8. PREDNISONE [Concomitant]
     Route: 048

REACTIONS (6)
  - Intentional overdose [Fatal]
  - Suicide attempt [Recovered/Resolved]
  - Depression [Recovered/Resolved]
  - Bronchitis [Recovered/Resolved]
  - Pharyngitis streptococcal [Recovered/Resolved]
  - Fatigue [Not Recovered/Not Resolved]
